FAERS Safety Report 5280851-4 (Version None)
Quarter: 2007Q1

REPORT INFORMATION
  Report Type: 
  Country: None (occurrence: None)
  Receive Date: 20070329
  Receipt Date: 20070319
  Transmission Date: 20070707
  Serious: Yes (Other)
  Sender: FDA-Public Use
  Company Number: GB-PFIZER INC-2007023098

PATIENT
  Sex: Female

DRUGS (3)
  1. SYNAREL SPRAY [Suspect]
     Indication: UTERINE LEIOMYOMA
  2. TRANEXAMIC ACID [Concomitant]
  3. SERTRALINE [Concomitant]

REACTIONS (1)
  - MENORRHAGIA [None]
